FAERS Safety Report 4739755-5 (Version None)
Quarter: 2005Q3

REPORT INFORMATION
  Report Type: 
  Country: None (occurrence: None)
  Receive Date: 20050810
  Receipt Date: 20050510
  Transmission Date: 20060218
  Serious: No
  Sender: FDA-Public Use
  Company Number: US-GLAXOSMITHKLINE-A0557956A

PATIENT
  Age: 58 Year
  Sex: Female

DRUGS (6)
  1. PAXIL [Suspect]
     Indication: DEPRESSION
     Dosage: 25MG PER DAY
     Route: 048
  2. LOPERAMIDE HCL [Concomitant]
  3. SYNTHROID [Concomitant]
  4. TOPAMAX [Concomitant]
  5. GLUCOSAMINE [Concomitant]
  6. PROTONIX [Concomitant]

REACTIONS (2)
  - CRYING [None]
  - DEPRESSION [None]
